FAERS Safety Report 15654844 (Version 2)
Quarter: 2018Q4

REPORT INFORMATION
  Report Type: Spontaneous
  Country: US (occurrence: US)
  Receive Date: 20181126
  Receipt Date: 20181212
  Transmission Date: 20190205
  Serious: Yes (Other)
  Sender: FDA-Public Use
  Company Number: US-ABBVIE-18K-163-2563966-00

PATIENT
  Age: 64 Year
  Sex: Female

DRUGS (4)
  1. HUMIRA [Suspect]
     Active Substance: ADALIMUMAB
     Indication: PSORIATIC ARTHROPATHY
     Route: 058
     Dates: start: 2009, end: 2016
  2. OTEZLA [Suspect]
     Active Substance: APREMILAST
     Indication: PRODUCT USED FOR UNKNOWN INDICATION
     Route: 065
     Dates: start: 2016, end: 2018
  3. METHOTREXATE. [Concomitant]
     Active Substance: METHOTREXATE
     Indication: PRODUCT USED FOR UNKNOWN INDICATION
  4. HUMIRA [Suspect]
     Active Substance: ADALIMUMAB
     Route: 058
     Dates: start: 20181119

REACTIONS (14)
  - Hepatic cirrhosis [Unknown]
  - Nausea [Recovering/Resolving]
  - Sluggishness [Recovered/Resolved]
  - Weight decreased [Recovered/Resolved]
  - Rash [Recovering/Resolving]
  - Injection site pain [Recovered/Resolved]
  - Colectomy [Unknown]
  - Hypophagia [Not Recovered/Not Resolved]
  - Incorrect dose administered [Unknown]
  - Depression [Recovering/Resolving]
  - Weight increased [Recovered/Resolved]
  - Wrong technique in product usage process [Unknown]
  - Injection site haemorrhage [Recovered/Resolved]
  - Injection site pain [Recovered/Resolved]

NARRATIVE: CASE EVENT DATE: 2009
